FAERS Safety Report 9258864 (Version 3)
Quarter: 2013Q3

REPORT INFORMATION
  Report Type: Spontaneous
  Country: IL (occurrence: IL)
  Receive Date: 20130426
  Receipt Date: 20130726
  Transmission Date: 20140515
  Serious: Yes (Death, Hospitalization, Other)
  Sender: FDA-Public Use
  Company Number: IL-VERTEX PHARMACEUTICALS INC.-2013-005463

PATIENT
  Age: 52 Year
  Sex: Male
  Weight: 81 kg

DRUGS (5)
  1. INCIVO [Suspect]
     Indication: HEPATITIS C
     Dosage: 750 MG, UNK
     Route: 048
     Dates: start: 20130221, end: 20130405
  2. PEGASYS [Suspect]
     Indication: HEPATITIS C
     Dosage: DOSAGE FORM: UNKNOWN
     Route: 058
  3. COPEGUS [Suspect]
     Indication: HEPATITIS C
     Dosage: DOSAGE FORM: UNSPECIFIED
     Route: 048
  4. NEUPOGEN [Suspect]
     Indication: NEUTROPENIA
     Dosage: DOSAGE FORM: INJECTION, 300 (UNIT NOT SPECIFIED)
     Route: 058
  5. URSOFALK [Concomitant]
     Dosage: DOSAGE FORM: CAPSULE
     Route: 065

REACTIONS (15)
  - Sepsis [Not Recovered/Not Resolved]
  - Shock [Not Recovered/Not Resolved]
  - Multi-organ failure [Fatal]
  - Hyperphosphataemia [Unknown]
  - Hyperammonaemia [Unknown]
  - Hyperkalaemia [Unknown]
  - Hypothermia [Unknown]
  - Pancytopenia [Unknown]
  - Leukopenia [Unknown]
  - Dizziness [Unknown]
  - Confusional state [Unknown]
  - Vomiting [Unknown]
  - Nausea [Unknown]
  - Syncope [Unknown]
  - Epistaxis [Recovered/Resolved]
